FAERS Safety Report 21107094 (Version 1)
Quarter: 2022Q3

REPORT INFORMATION
  Report Type: Spontaneous
  Country: US (occurrence: None)
  Receive Date: 20220720
  Receipt Date: 20220720
  Transmission Date: 20221026
  Serious: No
  Sender: FDA-Public Use
  Company Number: None

PATIENT
  Age: 56 Year
  Sex: Female
  Weight: 70.31 kg

DRUGS (1)
  1. ORENCIA [Suspect]
     Active Substance: ABATACEPT
     Indication: Psoriatic arthropathy
     Dosage: INJECT 125MG  SUBCUTANEOUSLY ONCE A WEEK  AS DIRECTED??- ON HOLD ?
     Route: 058
     Dates: start: 202107

REACTIONS (1)
  - Infection [None]
